FAERS Safety Report 5279384-0 (Version None)
Quarter: 2007Q1

REPORT INFORMATION
  Report Type: 
  Country: None (occurrence: None)
  Receive Date: 20070328
  Receipt Date: 20070316
  Transmission Date: 20070707
  Serious: Yes (Hospitalization)
  Sender: FDA-Public Use
  Company Number: 2007UW05229

PATIENT
  Age: 55 Year
  Sex: Female
  Weight: 68 kg

DRUGS (10)
  1. NEXIUM [Suspect]
     Indication: GASTROOESOPHAGEAL REFLUX DISEASE
     Route: 048
     Dates: start: 20020101
  2. NEXIUM [Suspect]
     Route: 048
  3. VYTORIN [Concomitant]
     Dosage: 10/20 ONCE DAILY
  4. COZAAR [Concomitant]
  5. PREMARIN [Concomitant]
  6. AVANDAMET [Concomitant]
     Dosage: 4/500 MG TWICE DAILY
  7. OSCAL 500 + D [Concomitant]
  8. DUONEB [Concomitant]
     Indication: ASTHMA
     Dosage: QID OR PRN WHEN ASTHMA OR BRONCHITIS FLARES
  9. DUONEB [Concomitant]
     Indication: BRONCHITIS
     Dosage: QID OR PRN WHEN ASTHMA OR BRONCHITIS FLARES
  10. TYLENOL EXTRA-STRENGTH [Concomitant]
     Indication: PAIN

REACTIONS (2)
  - FALL [None]
  - HIP FRACTURE [None]
